FAERS Safety Report 10697228 (Version 1)
Quarter: 2015Q1

REPORT INFORMATION
  Report Type: Report from Study
  Country: IE (occurrence: IE)
  Receive Date: 20150108
  Receipt Date: 20150108
  Transmission Date: 20150721
  Serious: Yes (Death)
  Sender: FDA-Public Use
  Company Number: IE-AMGEN-IRLSL2015000760

PATIENT
  Age: 69 Year
  Sex: Male

DRUGS (10)
  1. ARANESP [Suspect]
     Active Substance: DARBEPOETIN ALFA
     Indication: NON-SMALL CELL LUNG CANCER
     Dosage: 500 MUG, Q3WK
     Route: 058
     Dates: start: 20131104
  2. CLONFOLIC [Concomitant]
  3. TEGRETOL [Concomitant]
     Active Substance: CARBAMAZEPINE
  4. VITAMIN B12 [Concomitant]
     Active Substance: CYANOCOBALAMIN
  5. PANTOPRAZOLE [Concomitant]
     Active Substance: PANTOPRAZOLE SODIUM
  6. ZOMETA [Concomitant]
     Active Substance: ZOLEDRONIC ACID
  7. ASPIRIN                            /00002701/ [Concomitant]
     Active Substance: ASPIRIN
  8. DEXAMETHASONE. [Concomitant]
     Active Substance: DEXAMETHASONE
  9. CALCIUM GLYCEROPHOSPHATE\CELLULOSE\POLYETHYLENE GLYCOL\SACCHARIN SODIUM\SODIUM HYDROXIDE\SODIUM LAURYL SULFATE\SODIUM MAGNESIUM SILICATE\SODIUM MONOFLUOROPHOSPHATE\SORBITOL\WATER [Concomitant]
     Active Substance: CALCIUM GLYCEROPHOSPHATE\POLYETHYLENE GLYCOLS\POWDERED CELLULOSE\SACCHARIN SODIUM DIHYDRATE\SODIUM HYDROXIDE\SODIUM LAURYL SULFATE\SODIUM MAGNESIUM SILICATE\SODIUM MONOFLUOROPHOSPHATE\SORBITOL\WATER
  10. SANDOCAL                           /00751528/ [Concomitant]

REACTIONS (1)
  - Death [Fatal]

NARRATIVE: CASE EVENT DATE: 20141213
